FAERS Safety Report 8282491-1 (Version None)
Quarter: 2012Q2

REPORT INFORMATION
  Report Type: 
  Country: None (occurrence: None)
  Receive Date: 20120413
  Receipt Date: 20120404
  Transmission Date: 20120825
  Serious: Yes (Other)
  Sender: FDA-Public Use
  Company Number: US-ASTRAZENECA-2012SE22542

PATIENT
  Sex: Male

DRUGS (6)
  1. PRILOSEC OTC [Suspect]
     Indication: GASTROOESOPHAGEAL REFLUX DISEASE
     Route: 048
  2. NEXIUM [Suspect]
     Indication: GASTROOESOPHAGEAL REFLUX DISEASE
     Route: 048
     Dates: start: 19970101
  3. LEXAPRO [Concomitant]
     Dosage: AT NIGHT
  4. NEXIUM [Suspect]
     Route: 048
  5. NEXIUM [Suspect]
     Indication: DYSPEPSIA
     Route: 048
     Dates: start: 19970101
  6. NEXIUM [Suspect]
     Route: 048

REACTIONS (6)
  - INTERVERTEBRAL DISC PROTRUSION [None]
  - INTENTIONAL DRUG MISUSE [None]
  - ACCIDENT [None]
  - INTERVERTEBRAL DISC DEGENERATION [None]
  - MENTAL DISORDER [None]
  - PANIC ATTACK [None]
